FAERS Safety Report 15248283 (Version 2)
Quarter: 2018Q3

REPORT INFORMATION
  Report Type: Report from Study
  Country: US (occurrence: US)
  Receive Date: 20180807
  Receipt Date: 20180830
  Transmission Date: 20181010
  Serious: No
  Sender: FDA-Public Use
  Company Number: PHEH2018US032387

PATIENT
  Sex: Female
  Weight: 104.33 kg

DRUGS (1)
  1. COSENTYX [Suspect]
     Active Substance: SECUKINUMAB
     Indication: ANKYLOSING SPONDYLITIS
     Dosage: 150 MG, QW4
     Route: 058
     Dates: start: 201807

REACTIONS (12)
  - Glossodynia [Unknown]
  - Dizziness [Unknown]
  - Asthenia [Unknown]
  - Pharyngeal oedema [Unknown]
  - Hyperhidrosis [Unknown]
  - Sinusitis [Unknown]
  - Myalgia [Unknown]
  - Wheezing [Unknown]
  - Asthma [Unknown]
  - Dysphonia [Unknown]
  - Diarrhoea [Unknown]
  - Chest discomfort [Unknown]
